FAERS Safety Report 14813074 (Version 1)
Quarter: 2018Q2

REPORT INFORMATION
  Report Type: Spontaneous
  Country: FR (occurrence: FR)
  Receive Date: 20180426
  Receipt Date: 20180426
  Transmission Date: 20180711
  Serious: Yes (Hospitalization)
  Sender: FDA-Public Use
  Company Number: FR-MERCK KGAA-2046547

PATIENT
  Age: 77 Year
  Sex: Female

DRUGS (1)
  1. NOVOTHYROX [Suspect]
     Active Substance: LEVOTHYROXINE SODIUM
     Indication: PRODUCT USED FOR UNKNOWN INDICATION
     Dates: start: 201705

REACTIONS (7)
  - Vertigo [None]
  - Gastrointestinal disorder [None]
  - C-reactive protein increased [None]
  - Muscle spasms [None]
  - Blood thyroid stimulating hormone abnormal [None]
  - Thyroxine free increased [None]
  - Asthenia [None]

NARRATIVE: CASE EVENT DATE: 201705
